FAERS Safety Report 12834620 (Version 3)
Quarter: 2016Q4

REPORT INFORMATION
  Report Type: Spontaneous
  Country: US (occurrence: US)
  Receive Date: 20161010
  Receipt Date: 20161031
  Transmission Date: 20170207
  Serious: Yes (Hospitalization, Other)
  Sender: FDA-Public Use
  Company Number: US-PFIZER INC-2016468855

PATIENT
  Age: 69 Year
  Sex: Female
  Weight: 52 kg

DRUGS (4)
  1. XANAX [Suspect]
     Active Substance: ALPRAZOLAM
     Indication: ANXIETY
     Dosage: 1 MG, 4X/DAY
  2. XANAX [Suspect]
     Active Substance: ALPRAZOLAM
     Dosage: 2 MG, UNK
     Dates: start: 1980
  3. XANAX [Suspect]
     Active Substance: ALPRAZOLAM
     Dosage: 2 MG, 4X/DAY
     Dates: start: 201412
  4. METFORMIN [Concomitant]
     Active Substance: METFORMIN HYDROCHLORIDE
     Indication: DIABETES MELLITUS
     Dosage: 500 MG, 2X/DAY

REACTIONS (13)
  - Feeling abnormal [Recovered/Resolved]
  - Palpitations [Recovered/Resolved]
  - Anxiety [Recovered/Resolved]
  - Peripheral coldness [Recovered/Resolved]
  - Tremor [Recovered/Resolved]
  - Mental impairment [Recovered/Resolved]
  - Drug ineffective [Not Recovered/Not Resolved]
  - Speech disorder [Recovered/Resolved]
  - Suicidal ideation [Recovered/Resolved]
  - Disease progression [Recovering/Resolving]
  - Drug dependence [Not Recovered/Not Resolved]
  - Impaired driving ability [Recovered/Resolved]
  - Dysgraphia [Recovered/Resolved]

NARRATIVE: CASE EVENT DATE: 2014
